FAERS Safety Report 6173181-X (Version None)
Quarter: 2009Q2

REPORT INFORMATION
  Report Type: 
  Country: None (occurrence: None)
  Receive Date: 20090430
  Receipt Date: 20090422
  Transmission Date: 20091009
  Serious: Yes (Hospitalization)
  Sender: FDA-Public Use
  Company Number: JP-PFIZER INC-2009203545

PATIENT

DRUGS (5)
  1. IRINOTECAN HCL [Suspect]
     Indication: COLORECTAL CANCER
     Dosage: 173 MG, EVERY 2 WEEKS
     Dates: start: 20080722
  2. LEUCOVORIN CALCIUM [Suspect]
     Indication: COLORECTAL CANCER
     Dosage: 192 MG, EVERY 2 WEEKS
     Dates: start: 20080722
  3. *FLUOROURACIL [Suspect]
     Indication: COLORECTAL CANCER
     Dosage: 385 MG, EVERY 2 WEEKS
     Route: 040
     Dates: start: 20080722
  4. *FLUOROURACIL [Suspect]
     Dosage: 2310 MG, EVERY 2 WEEKS
     Route: 041
     Dates: start: 20080722
  5. SUNITINIB MALATE [Suspect]
     Indication: COLORECTAL CANCER
     Dosage: 37.5 MG, 1X/DAY
     Route: 048
     Dates: start: 20080722

REACTIONS (1)
  - ABDOMINAL DISTENSION [None]
